FAERS Safety Report 8784447 (Version 1)
Quarter: 2012Q4

REPORT INFORMATION
  Report Type: 
  Country: DE (occurrence: DE)
  Receive Date: 20120913
  Receipt Date: 20120913
  Transmission Date: 20130627
  Serious: Yes (Hospitalization)
  Sender: FDA-Public Use
  Company Number: DE-PFIZER INC-2012221225

PATIENT
  Age: 21 Year
  Sex: Female
  Weight: 75 kg

DRUGS (2)
  1. GENOTROPIN [Suspect]
     Dosage: 0.4 mg, 1x/day (7/wk)
     Route: 058
     Dates: start: 20090519
  2. TRISEQUENS [Concomitant]
     Indication: MENSTRUAL DISORDER
     Dosage: UNK
     Dates: start: 20090210

REACTIONS (1)
  - Eye disorder [Unknown]
